APPROVED DRUG PRODUCT: PROCAINAMIDE HYDROCHLORIDE
Active Ingredient: PROCAINAMIDE HYDROCHLORIDE
Strength: 1GM
Dosage Form/Route: TABLET, EXTENDED RELEASE;ORAL
Application: A089520 | Product #001
Applicant: WATSON LABORATORIES INC
Approved: Jan 15, 1987 | RLD: No | RS: No | Type: DISCN